FAERS Safety Report 5866814-6 (Version None)
Quarter: 2008Q3

REPORT INFORMATION
  Report Type: 
  Country: None (occurrence: None)
  Receive Date: 20080828
  Receipt Date: 20080828
  Transmission Date: 20090109
  Serious: No
  Sender: FDA-Public Use
  Company Number: None

PATIENT
  Sex: Male
  Weight: 98.8842 kg

DRUGS (2)
  1. TORSEMIDE [Suspect]
     Indication: DIURETIC THERAPY
     Dosage: 100 MG TWICE A DAILY PO
     Route: 048
     Dates: start: 20080821, end: 20080822
  2. TORSEMIDE [Suspect]
     Indication: HYPERTENSION
     Dosage: 100 MG TWICE A DAILY PO
     Route: 048
     Dates: start: 20080821, end: 20080822

REACTIONS (3)
  - DRUG INEFFECTIVE [None]
  - THERAPEUTIC RESPONSE UNEXPECTED WITH DRUG SUBSTITUTION [None]
  - WEIGHT INCREASED [None]
